FAERS Safety Report 17197596 (Version 1)
Quarter: 2019Q4

REPORT INFORMATION
  Report Type: Spontaneous
  Country: HR (occurrence: HR)
  Receive Date: 20191224
  Receipt Date: 20191224
  Transmission Date: 20200122
  Serious: Yes (Other)
  Sender: FDA-Public Use
  Company Number: HR-009507513-1912HRV009720

PATIENT
  Sex: Female

DRUGS (5)
  1. HELEX [Concomitant]
     Active Substance: ALPRAZOLAM
     Dosage: UNK
  2. KEYTRUDA [Suspect]
     Active Substance: PEMBROLIZUMAB
     Indication: LUNG NEOPLASM MALIGNANT
     Dosage: UNK
     Dates: start: 20190212
  3. CONTROLOC (PANTOPRAZOLE) [Concomitant]
     Dosage: UNK
  4. ZALDIAR [Concomitant]
     Active Substance: ACETAMINOPHEN\TRAMADOL HYDROCHLORIDE
     Dosage: UNK
  5. DEXAMETHASONE. [Concomitant]
     Active Substance: DEXAMETHASONE
     Dosage: UNK

REACTIONS (6)
  - Asthenia [Unknown]
  - Squamous cell breast carcinoma [Unknown]
  - Depression [Unknown]
  - Tachycardia [Unknown]
  - Dyspnoea exertional [Unknown]
  - Hyperthyroidism [Unknown]

NARRATIVE: CASE EVENT DATE: 2019
